FAERS Safety Report 16763044 (Version 2)
Quarter: 2019Q3

REPORT INFORMATION
  Report Type: Spontaneous
  Country: JP (occurrence: JP)
  Receive Date: 20190902
  Receipt Date: 20190918
  Transmission Date: 20191005
  Serious: Yes (Other)
  Sender: FDA-Public Use
  Company Number: JP-009507513-1908JPN002757J

PATIENT

DRUGS (1)
  1. KEYTRUDA [Suspect]
     Active Substance: PEMBROLIZUMAB
     Indication: NON-SMALL CELL LUNG CANCER
     Dosage: UNK
     Route: 041

REACTIONS (6)
  - Interstitial lung disease [Unknown]
  - Polymyositis [Unknown]
  - Cholangitis [Unknown]
  - Type 1 diabetes mellitus [Unknown]
  - Renal disorder [Unknown]
  - Hepatitis [Unknown]
